FAERS Safety Report 14912017 (Version 6)
Quarter: 2018Q4

REPORT INFORMATION
  Report Type: Spontaneous
  Country: US (occurrence: US)
  Receive Date: 20180518
  Receipt Date: 20181001
  Transmission Date: 20190204
  Serious: Yes (Hospitalization)
  Sender: FDA-Public Use
  Company Number: US-PFIZER INC-2018197984

PATIENT
  Age: 12 Year
  Sex: Female
  Weight: 30.39 kg

DRUGS (3)
  1. GENOTROPIN [Suspect]
     Active Substance: SOMATROPIN
     Indication: TURNER^S SYNDROME
     Dosage: 1.4 MG, DAILY
     Dates: start: 20180516
  2. GENOTROPIN [Suspect]
     Active Substance: SOMATROPIN
     Indication: HYPOGLYCAEMIA
     Dosage: 1.4 MG, 1X/DAY
     Dates: start: 201805
  3. GENOTROPIN [Suspect]
     Active Substance: SOMATROPIN
     Indication: GROWTH HORMONE DEFICIENCY
     Dosage: 1.3 MG, DAILY
     Dates: start: 20180510

REACTIONS (4)
  - Malaise [Unknown]
  - Blood creatinine decreased [Unknown]
  - Psychotic disorder [Unknown]
  - Blood triglycerides increased [Unknown]

NARRATIVE: CASE EVENT DATE: 20180918
